FAERS Safety Report 20316207 (Version 2)
Quarter: 2022Q1

REPORT INFORMATION
  Report Type: Spontaneous
  Country: ES (occurrence: ES)
  Receive Date: 20220110
  Receipt Date: 20220111
  Transmission Date: 20220423
  Serious: Yes (Other)
  Sender: FDA-Public Use
  Company Number: ES-BAYER-2022A001270

PATIENT

DRUGS (1)
  1. EYLEA [Suspect]
     Active Substance: AFLIBERCEPT
     Indication: Retinal vein occlusion
     Dosage: 1 DF, ONCE, THIRD INJECTION RECEIVED
     Route: 031

REACTIONS (7)
  - Blindness [Recovered/Resolved]
  - Hypopyon [Recovered/Resolved]
  - Visual impairment [Unknown]
  - Vitreous opacities [Recovered/Resolved]
  - Pain [Unknown]
  - Drug ineffective [Unknown]
  - Eyelid oedema [Unknown]
